FAERS Safety Report 20296698 (Version 3)
Quarter: 2025Q3

REPORT INFORMATION
  Report Type: Spontaneous
  Country: US (occurrence: US)
  Receive Date: 20220105
  Receipt Date: 20250722
  Transmission Date: 20251021
  Serious: No
  Sender: ROCHE
  Company Number: US-ROCHE-2830768

PATIENT
  Age: 35 Year
  Sex: Male

DRUGS (5)
  1. HEMLIBRA [Suspect]
     Active Substance: EMICIZUMAB-KXWH
     Indication: Factor VIII deficiency
     Dosage: STRENGTH: 150 MG/ML VIAL
     Route: 058
     Dates: start: 201910
  2. HEMLIBRA [Suspect]
     Active Substance: EMICIZUMAB-KXWH
     Dosage: STRENGTH-105MG/0.7ML
     Route: 058
     Dates: start: 202301
  3. HEMLIBRA [Suspect]
     Active Substance: EMICIZUMAB-KXWH
     Dosage: STRENGTH-105MG/0.7ML
     Route: 058
     Dates: start: 202303
  4. TYLENOL [Concomitant]
     Active Substance: ACETAMINOPHEN
  5. CLARITIN [Concomitant]
     Active Substance: LORATADINE

REACTIONS (2)
  - Haemorrhage [Unknown]
  - Traumatic haemorrhage [Unknown]

NARRATIVE: CASE EVENT DATE: 20250407
